FAERS Safety Report 6914137-6 (Version None)
Quarter: 2010Q3

REPORT INFORMATION
  Report Type: 
  Country: None (occurrence: None)
  Receive Date: 20100809
  Receipt Date: 20100727
  Transmission Date: 20110219
  Serious: Yes (Death)
  Sender: FDA-Public Use
  Company Number: US-PFIZER INC-2010095066

PATIENT
  Sex: Male
  Weight: 70 kg

DRUGS (5)
  1. CHANTIX [Suspect]
     Indication: SMOKING CESSATION THERAPY
     Dosage: 0.5 MG, 1X/DAY
     Route: 048
     Dates: start: 20091101
  2. CHANTIX [Suspect]
     Dosage: 0.5 MG, 1X/DAY
     Dates: start: 20100201, end: 20100101
  3. CHANTIX [Suspect]
     Dosage: 1 MG, 2X/DAY
     Dates: start: 20100101, end: 20100508
  4. DEPAKOTE [Suspect]
     Indication: CONVULSION
     Dosage: UNK
     Route: 048
  5. KEPPRA [Suspect]
     Indication: CONVULSION
     Dosage: UNK

REACTIONS (2)
  - CONVULSION [None]
  - SOMNOLENCE [None]
